FAERS Safety Report 19241855 (Version 6)
Quarter: 2025Q1

REPORT INFORMATION
  Report Type: Report from Study
  Country: IE (occurrence: IE)
  Receive Date: 20210511
  Receipt Date: 20250115
  Transmission Date: 20250409
  Serious: Yes (Other)
  Sender: TAKEDA
  Company Number: IE-TAKEDA-IE202018439

PATIENT
  Age: 63 Year
  Sex: Male

DRUGS (9)
  1. HUMAN IMMUNOGLOBULIN G\HYALURONIDASE RECOMBINANT HUMAN [Suspect]
     Active Substance: HUMAN IMMUNOGLOBULIN G\HYALURONIDASE (HUMAN RECOMBINANT)
     Indication: Rheumatoid arthritis
     Dosage: 30 GRAM, Q3WEEKS
     Dates: start: 20200430
  2. HUMAN IMMUNOGLOBULIN G\HYALURONIDASE RECOMBINANT HUMAN [Suspect]
     Active Substance: HUMAN IMMUNOGLOBULIN G\HYALURONIDASE (HUMAN RECOMBINANT)
     Dosage: 30 GRAM, Q3WEEKS
     Dates: start: 20200506
  3. HUMAN IMMUNOGLOBULIN G\HYALURONIDASE RECOMBINANT HUMAN [Suspect]
     Active Substance: HUMAN IMMUNOGLOBULIN G\HYALURONIDASE (HUMAN RECOMBINANT)
     Dosage: 30 GRAM, Q3WEEKS
  4. RITUXIMAB [Concomitant]
     Active Substance: RITUXIMAB
  5. B 12 [Concomitant]
  6. PROLIA [Concomitant]
     Active Substance: DENOSUMAB
  7. TRAMADOL [Concomitant]
     Active Substance: TRAMADOL
     Dosage: UNK UNK, TID
  8. TRAMADOL [Concomitant]
     Active Substance: TRAMADOL
     Dosage: UNK UNK, BID
  9. SIMVASTATIN [Concomitant]
     Active Substance: SIMVASTATIN
     Dosage: 20 MILLIGRAM, QD

REACTIONS (14)
  - Lower respiratory tract infection [Recovering/Resolving]
  - Product storage error [Recovered/Resolved]
  - Device infusion issue [Recovered/Resolved]
  - Device difficult to use [Recovered/Resolved]
  - Product use in unapproved indication [Unknown]
  - Product dose omission issue [Recovering/Resolving]
  - Inappropriate schedule of product administration [Recovered/Resolved]
  - Infection [Not Recovered/Not Resolved]
  - Cough [Not Recovered/Not Resolved]
  - Diarrhoea [Recovering/Resolving]
  - Malaise [Not Recovered/Not Resolved]
  - Back pain [Not Recovered/Not Resolved]
  - Vomiting [Recovering/Resolving]
  - Fatigue [Unknown]

NARRATIVE: CASE EVENT DATE: 20200430
